FAERS Safety Report 9746267 (Version 1)
Quarter: 2013Q4

REPORT INFORMATION
  Report Type: Spontaneous
  Country: AU (occurrence: None)
  Receive Date: 20131205
  Receipt Date: 20131205
  Transmission Date: 20140711
  Serious: Yes (Hospitalization)
  Sender: FDA-Public Use
  Company Number: 2013TP000654

PATIENT
  Age: 60 Year
  Sex: Female

DRUGS (14)
  1. VERSATIS (NO PREF. NAME) [Suspect]
     Indication: PRODUCT USED FOR UNKNOWN INDICATION
     Dosage: PATCH.
     Route: 061
     Dates: start: 20130723
  2. AMITRIPTYLINE [Concomitant]
  3. CALCIUM CARBONATE [Concomitant]
  4. CHOLECALCIFEROL [Concomitant]
  5. FISH OIL [Concomitant]
  6. GLUCOSAMINE [Concomitant]
  7. MAREVAN [Concomitant]
  8. MIRTAZAPINE [Concomitant]
  9. INEXIUM [Concomitant]
  10. PANADOL [Concomitant]
  11. INDAPAMIDE HEMIHYDRATE [Concomitant]
  12. SALBUTAMOL [Concomitant]
  13. FLUTICASONE PROPIONATE W/SALMETEROL XINAFOATE [Concomitant]
  14. SIFROL [Concomitant]

REACTIONS (1)
  - Supraventricular tachycardia [None]
